FAERS Safety Report 5804485-5 (Version None)
Quarter: 2008Q3

REPORT INFORMATION
  Report Type: 
  Country: None (occurrence: None)
  Receive Date: 20080707
  Receipt Date: 20080707
  Transmission Date: 20090109
  Serious: No
  Sender: FDA-Public Use
  Company Number: None

PATIENT
  Age: 55 Year
  Sex: Female
  Weight: 72.5755 kg

DRUGS (1)
  1. TEMAZEPAM [Suspect]
     Dates: start: 20080409, end: 20080514

REACTIONS (3)
  - HEADACHE [None]
  - MIDDLE INSOMNIA [None]
  - PALPITATIONS [None]
